FAERS Safety Report 12262704 (Version 2)
Quarter: 2016Q2

REPORT INFORMATION
  Report Type: Spontaneous
  Country: JP (occurrence: JP)
  Receive Date: 20160413
  Receipt Date: 20160426
  Transmission Date: 20160815
  Serious: Yes (Life-Threatening, Other)
  Sender: FDA-Public Use
  Company Number: JP-PFIZER INC-2016202375

PATIENT
  Age: 8 Year

DRUGS (1)
  1. LINEZOLID. [Suspect]
     Active Substance: LINEZOLID
     Dosage: 10 MG/KG, 3X/DAY
     Route: 042

REACTIONS (3)
  - Product use issue [Unknown]
  - Device related infection [Not Recovered/Not Resolved]
  - Drug resistance [Unknown]
